FAERS Safety Report 19714069 (Version 1)
Quarter: 2021Q3

REPORT INFORMATION
  Report Type: Spontaneous
  Country: US (occurrence: US)
  Receive Date: 20210817
  Receipt Date: 20210817
  Transmission Date: 20211014
  Serious: Yes (Hospitalization)
  Sender: FDA-Public Use
  Company Number: None

PATIENT
  Age: 69 Year
  Sex: Female
  Weight: 108.8 kg

DRUGS (10)
  1. DEXAMETHASONE. [Suspect]
     Active Substance: DEXAMETHASONE
     Dates: end: 20210622
  2. LENALIDOMIDE (CC?5013) [Suspect]
     Active Substance: LENALIDOMIDE
     Dates: end: 20210621
  3. COUMADIN [Concomitant]
     Active Substance: WARFARIN SODIUM
  4. FLECAINIDE [Concomitant]
     Active Substance: FLECAINIDE
  5. DILTIAZEM. [Concomitant]
     Active Substance: DILTIAZEM
  6. DARATUMUMAB [Suspect]
     Active Substance: DARATUMUMAB
     Dates: end: 20210608
  7. SYNTHROID [Concomitant]
     Active Substance: LEVOTHYROXINE SODIUM
  8. CHLORTHALIDONE. [Concomitant]
     Active Substance: CHLORTHALIDONE
  9. ASPIRIN. [Concomitant]
     Active Substance: ASPIRIN
  10. DIGOXIN. [Concomitant]
     Active Substance: DIGOXIN

REACTIONS (1)
  - International normalised ratio increased [None]

NARRATIVE: CASE EVENT DATE: 20210622
